FAERS Safety Report 9259093 (Version 1)
Quarter: 2013Q2

REPORT INFORMATION
  Report Type: Spontaneous
  Country: CO (occurrence: CO)
  Receive Date: 20130426
  Receipt Date: 20130426
  Transmission Date: 20140414
  Serious: Yes (Other)
  Sender: FDA-Public Use
  Company Number: CO-PFIZER INC-2013129671

PATIENT
  Age: 80 Year
  Sex: Female

DRUGS (1)
  1. LYRICA [Suspect]
     Indication: LUMBAR HERNIA
     Dosage: 150 MG, 1X/DAY
     Route: 048
     Dates: start: 2007

REACTIONS (3)
  - Glaucoma [Not Recovered/Not Resolved]
  - Somnolence [Recovering/Resolving]
  - Back pain [Not Recovered/Not Resolved]
